FAERS Safety Report 19832297 (Version 1)
Quarter: 2021Q3

REPORT INFORMATION
  Report Type: Spontaneous
  Country: US (occurrence: US)
  Receive Date: 20210915
  Receipt Date: 20210915
  Transmission Date: 20211014
  Serious: Yes (Other)
  Sender: FDA-Public Use
  Company Number: None

PATIENT
  Sex: Female

DRUGS (1)
  1. GABAPENTIN ORAL TABLET AND CAPSULE [Suspect]
     Active Substance: GABAPENTIN

REACTIONS (1)
  - Urticaria [None]
